FAERS Safety Report 17678500 (Version 42)
Quarter: 2022Q2

REPORT INFORMATION
  Report Type: Other
  Country: US (occurrence: None)
  Receive Date: 20200417
  Receipt Date: 20220629
  Transmission Date: 20220721
  Serious: Yes (Hospitalization, Other)
  Sender: FDA-Public Use
  Company Number: US-ROCHE-2583547

PATIENT
  Age: 70 Year
  Sex: Female
  Weight: 74.910 kg

DRUGS (16)
  1. ALECENSA [Suspect]
     Active Substance: ALECTINIB HYDROCHLORIDE
     Indication: Lung neoplasm malignant
     Dosage: TAKE 4 CAPSULE(S) TWICE A DAY WITH FOOD, SWALLOW CAPSULE WHOLE, DO NOT OPEN OR DISSOLVE
     Route: 048
     Dates: start: 202004
  2. ALECENSA [Suspect]
     Active Substance: ALECTINIB HYDROCHLORIDE
     Indication: Metastases to central nervous system
     Dosage: TAKE 3 CAPSULE(S) BY MOUTH TWICE A DAY
     Route: 048
     Dates: start: 202004
  3. ALECENSA [Suspect]
     Active Substance: ALECTINIB HYDROCHLORIDE
     Indication: Lung neoplasm malignant
     Dosage: ONGOING :YES
     Route: 048
     Dates: start: 202004
  4. ALECENSA [Suspect]
     Active Substance: ALECTINIB HYDROCHLORIDE
     Indication: Neoplasm malignant
     Route: 048
  5. ALECENSA [Suspect]
     Active Substance: ALECTINIB HYDROCHLORIDE
     Dosage: TAKE 3 CAPSULE(S) BY MOUTH TWICE A DAY
     Route: 048
  6. ALECENSA [Suspect]
     Active Substance: ALECTINIB HYDROCHLORIDE
     Route: 048
  7. ALECENSA [Suspect]
     Active Substance: ALECTINIB HYDROCHLORIDE
     Route: 048
  8. ALECENSA [Suspect]
     Active Substance: ALECTINIB HYDROCHLORIDE
     Route: 048
     Dates: start: 20200729
  9. VALIUM [Suspect]
     Active Substance: DIAZEPAM
     Indication: Product used for unknown indication
     Dosage: 10 MINUTES BEFORE ALECENSA
     Route: 065
  10. AMITIZA [Concomitant]
     Active Substance: LUBIPROSTONE
  11. OMEGA-3 FATTY ACIDS [Concomitant]
     Active Substance: OMEGA-3 FATTY ACIDS
  12. COMPAZINE [Concomitant]
     Active Substance: PROCHLORPERAZINE MALEATE
     Dosage: 10 MINUTES BEFORE ALECENSA
  13. LOSARTAN [Concomitant]
     Active Substance: LOSARTAN
  14. METOPROLOL [Concomitant]
     Active Substance: METOPROLOL
  15. FISH OIL [Concomitant]
     Active Substance: FISH OIL
  16. PRAVASTATIN [Concomitant]
     Active Substance: PRAVASTATIN

REACTIONS (54)
  - Atrial fibrillation [Unknown]
  - Hypertension [Unknown]
  - Hypertension [Unknown]
  - Bradycardia [Unknown]
  - Fatigue [Unknown]
  - Nausea [Recovered/Resolved]
  - Decreased appetite [Unknown]
  - Peripheral swelling [Unknown]
  - Intracranial mass [Not Recovered/Not Resolved]
  - Constipation [Not Recovered/Not Resolved]
  - Vision blurred [Unknown]
  - Myalgia [Unknown]
  - Back pain [Unknown]
  - Pain [Unknown]
  - Haemoglobin decreased [Unknown]
  - Constipation [Unknown]
  - Diarrhoea [Unknown]
  - Asthenia [Unknown]
  - Tachycardia [Unknown]
  - Amnesia [Unknown]
  - Anxiety [Unknown]
  - Insomnia [Unknown]
  - Hallucination [Unknown]
  - Dysuria [Unknown]
  - White blood cell count increased [Unknown]
  - Treatment noncompliance [Unknown]
  - Drug ineffective [Unknown]
  - Dysphonia [Unknown]
  - Headache [Not Recovered/Not Resolved]
  - Ocular discomfort [Unknown]
  - Claustrophobia [Unknown]
  - Pollakiuria [Unknown]
  - Micturition urgency [Unknown]
  - Feeling abnormal [Unknown]
  - Dyspnoea [Unknown]
  - Arthralgia [Unknown]
  - COVID-19 [Unknown]
  - Chest injury [Unknown]
  - Intentional product misuse [Unknown]
  - Fall [Unknown]
  - Gastrointestinal disorder [Unknown]
  - Toothache [Unknown]
  - Nervousness [Unknown]
  - Tooth infection [Not Recovered/Not Resolved]
  - Cardiac hypertrophy [Unknown]
  - Hypoaesthesia [Unknown]
  - Urinary tract infection [Unknown]
  - Colitis [Not Recovered/Not Resolved]
  - Product dose omission issue [Unknown]
  - Blood cholesterol increased [Unknown]
  - Dizziness [Unknown]
  - Gastric disorder [Unknown]
  - Feeling abnormal [Unknown]
  - Abdominal pain upper [Unknown]

NARRATIVE: CASE EVENT DATE: 20200401
